FAERS Safety Report 8207854-1 (Version None)
Quarter: 2012Q1

REPORT INFORMATION
  Report Type: 
  Country: None (occurrence: None)
  Receive Date: 20120314
  Receipt Date: 20120306
  Transmission Date: 20120608
  Serious: Yes (Other)
  Sender: FDA-Public Use
  Company Number: US-JNJFOC-20120303948

PATIENT
  Age: 56 Year
  Sex: Female

DRUGS (26)
  1. ALBUTEROL [Concomitant]
     Indication: WHEEZING
     Route: 045
  2. SINGULAIR [Concomitant]
  3. LASIX [Concomitant]
     Route: 048
  4. LYRICA [Concomitant]
     Route: 048
  5. COZAAR [Concomitant]
     Route: 048
  6. POTASSIUM CHLORIDE [Concomitant]
     Route: 048
  7. VITAMIN [Concomitant]
  8. ASCORBIC ACID [Concomitant]
     Route: 048
  9. PEPCID [Concomitant]
     Route: 048
  10. E VITAMIN [Concomitant]
  11. ACETAMINOPHEN [Concomitant]
     Indication: PAIN
  12. NORVASC [Concomitant]
  13. PROZAC [Concomitant]
     Route: 048
  14. FLONASE [Concomitant]
     Route: 045
  15. XARELTO [Suspect]
     Indication: KNEE ARTHROPLASTY
     Route: 048
     Dates: start: 20120101, end: 20120206
  16. FERROUS SULFATE TAB [Concomitant]
     Route: 048
  17. COPAXONE [Concomitant]
     Indication: MULTIPLE SCLEROSIS
     Route: 058
  18. ATIVAN [Concomitant]
     Route: 048
  19. LIPITOR [Concomitant]
  20. DEPAKOTE [Concomitant]
     Route: 048
  21. METFORMIN HCL [Concomitant]
     Route: 042
  22. VITAMIN B-12 [Concomitant]
     Route: 065
  23. COREG [Concomitant]
     Route: 048
  24. ADVAIR DISKUS 100/50 [Concomitant]
  25. PERCOCET [Concomitant]
  26. MIRAPEX [Concomitant]
     Route: 048

REACTIONS (1)
  - VENOUS THROMBOSIS LIMB [None]
